FAERS Safety Report 22310078 (Version 1)
Quarter: 2023Q2

REPORT INFORMATION
  Report Type: Spontaneous
  Country: US (occurrence: None)
  Receive Date: 20230510
  Receipt Date: 20230510
  Transmission Date: 20230722
  Serious: Yes (Hospitalization)
  Sender: FDA-Public Use
  Company Number: None

PATIENT
  Age: 59 Year
  Sex: Male

DRUGS (2)
  1. OPSUMIT [Suspect]
     Active Substance: MACITENTAN
     Indication: Pulmonary arterial hypertension
     Dosage: FREQUENCY : DAILY;?
     Route: 048
     Dates: start: 20151113
  2. TORSEMIDE [Suspect]
     Active Substance: TORSEMIDE

REACTIONS (7)
  - Dyspnoea [None]
  - Weight increased [None]
  - Nausea [None]
  - Treatment noncompliance [None]
  - Urine output decreased [None]
  - Brain natriuretic peptide increased [None]
  - Blood creatinine increased [None]

NARRATIVE: CASE EVENT DATE: 20230509
